FAERS Safety Report 7460492-0 (Version None)
Quarter: 2011Q2

REPORT INFORMATION
  Report Type: 
  Country: None (occurrence: None)
  Receive Date: 20110505
  Receipt Date: 20110502
  Transmission Date: 20111010
  Serious: Yes (Hospitalization, Other)
  Sender: FDA-Public Use
  Company Number: US-PFIZER INC-2011020803

PATIENT
  Sex: Female

DRUGS (13)
  1. MIRAPEX [Concomitant]
     Indication: RESTLESS LEGS SYNDROME
     Dosage: UNK,
     Dates: start: 20030101
  2. FLOVENT [Concomitant]
     Indication: CHRONIC OBSTRUCTIVE PULMONARY DISEASE
     Dosage: UNK,
     Dates: start: 20080101
  3. SEROQUEL [Concomitant]
     Indication: DEPRESSION
     Dosage: UNK,
     Dates: start: 20080101
  4. NEXIUM [Concomitant]
     Indication: GASTROOESOPHAGEAL REFLUX DISEASE
     Dosage: UNK,
     Dates: start: 20070101
  5. LISINOPRIL [Concomitant]
     Indication: HYPERTENSION
     Dosage: UNK,
     Dates: start: 20070101
  6. LYRICA [Concomitant]
     Indication: ANALGESIC THERAPY
     Dosage: UNK,
     Dates: start: 20080101
  7. ZOCOR [Concomitant]
     Indication: BLOOD CHOLESTEROL INCREASED
     Dosage: UNK,
     Dates: start: 20050101
  8. MUCINEX [Concomitant]
     Indication: CHRONIC OBSTRUCTIVE PULMONARY DISEASE
     Dosage: UNK,
     Dates: start: 20040101
  9. CHANTIX [Suspect]
     Indication: SMOKING CESSATION THERAPY
     Dosage: STARTER PACK
     Dates: start: 20090201, end: 20090201
  10. METFORMIN [Concomitant]
     Indication: DIABETES MELLITUS
     Dosage: UNK,
     Dates: start: 20080101
  11. DIFLUCAN [Concomitant]
     Indication: ANTIFUNGAL PROPHYLAXIS
     Dosage: UNK,
     Dates: start: 20030101
  12. LORTAB [Concomitant]
     Indication: ANALGESIC THERAPY
     Dosage: UNK,
     Dates: start: 20030101
  13. KLONOPIN [Concomitant]
     Indication: ANXIETY
     Dosage: UNK,
     Dates: start: 20030101

REACTIONS (7)
  - LOSS OF CONSCIOUSNESS [None]
  - PAIN IN EXTREMITY [None]
  - HIP FRACTURE [None]
  - ANXIETY [None]
  - CONVULSION [None]
  - SUICIDAL IDEATION [None]
  - DEPRESSION [None]
